FAERS Safety Report 22031687 (Version 2)
Quarter: 2023Q1

REPORT INFORMATION
  Report Type: Spontaneous
  Country: DK (occurrence: DK)
  Receive Date: 20230224
  Receipt Date: 20230317
  Transmission Date: 20230418
  Serious: Yes (Death)
  Sender: FDA-Public Use
  Company Number: None

PATIENT
  Age: 88 Year
  Sex: Female
  Weight: 79 kg

DRUGS (1)
  1. BUPRENORPHINE [Suspect]
     Active Substance: BUPRENORPHINE
     Indication: Pain
     Dosage: STRENGTH: 5 UG/HOUR, UNIT DOSE : 1 DF, DURATION : 2 DAYS
     Dates: start: 20211001, end: 20211003

REACTIONS (6)
  - Aphasia [Fatal]
  - Conjunctivitis [Fatal]
  - Tremor [Fatal]
  - Dyspnoea [Fatal]
  - Peripheral swelling [Fatal]
  - Hyperhidrosis [Fatal]

NARRATIVE: CASE EVENT DATE: 20211001
